FAERS Safety Report 8063491-3 (Version None)
Quarter: 2012Q1

REPORT INFORMATION
  Report Type: 
  Country: None (occurrence: None)
  Receive Date: 20120123
  Receipt Date: 20120117
  Transmission Date: 20120608
  Serious: Yes (Other)
  Sender: FDA-Public Use
  Company Number: PHEH2011US012769

PATIENT
  Sex: Female

DRUGS (3)
  1. GILENYA [Suspect]
     Indication: MULTIPLE SCLEROSIS
     Dosage: 0.5 MG, DAILY
     Route: 048
     Dates: start: 20111201
  2. ZOLOFT [Concomitant]
     Dosage: UNK UKN, (ONCE IN THE MORNING)
  3. SAPHRIS [Concomitant]
     Dosage: UNK UKN, (ONCE IN THE EVENING)

REACTIONS (4)
  - SUTURE INSERTION [None]
  - APATHY [None]
  - DEPRESSION [None]
  - FALL [None]
